FAERS Safety Report 15688285 (Version 1)
Quarter: 2018Q4

REPORT INFORMATION
  Report Type: Spontaneous
  Country: US (occurrence: US)
  Receive Date: 20181205
  Receipt Date: 20181205
  Transmission Date: 20190205
  Serious: Yes (Other)
  Sender: FDA-Public Use
  Company Number: US-ASTRAZENECA-2018SF57091

PATIENT
  Age: 56 Year
  Sex: Male

DRUGS (1)
  1. BRILINTA [Suspect]
     Active Substance: TICAGRELOR
     Indication: ACUTE MYOCARDIAL INFARCTION
     Dosage: UNKNOWN
     Route: 048
     Dates: start: 20181125, end: 20181125

REACTIONS (6)
  - Metabolic encephalopathy [Unknown]
  - Acute pulmonary oedema [Unknown]
  - Cheyne-Stokes respiration [Recovered/Resolved]
  - Encephalopathy [Recovered/Resolved]
  - Respiratory failure [Unknown]
  - Bradycardia [Recovered/Resolved]
